FAERS Safety Report 11272568 (Version 1)
Quarter: 2015Q3

REPORT INFORMATION
  Report Type: Spontaneous
  Country: SE (occurrence: SE)
  Receive Date: 20150715
  Receipt Date: 20150715
  Transmission Date: 20151125
  Serious: Yes (Other)
  Sender: FDA-Public Use
  Company Number: SE-TEVA-578193ISR

PATIENT
  Age: 68 Year
  Sex: Male

DRUGS (3)
  1. ENALAPRIL TABLETTER [Suspect]
     Active Substance: ENALAPRIL
  2. TRAVATAN [Suspect]
     Active Substance: TRAVOPROST
     Dosage: SOLUTION
  3. NEVANAC [Suspect]
     Active Substance: NEPAFENAC
     Dosage: SUSPENSION

REACTIONS (4)
  - Pain in extremity [Unknown]
  - Balance disorder [Unknown]
  - Chest pain [Unknown]
  - Tinnitus [Unknown]
